FAERS Safety Report 9101755 (Version 1)
Quarter: 2013Q1

REPORT INFORMATION
  Report Type: Spontaneous
  Country: TR (occurrence: TR)
  Receive Date: 20130218
  Receipt Date: 20130218
  Transmission Date: 20140127
  Serious: Yes (Other)
  Sender: FDA-Public Use
  Company Number: CHNY2013TR000655

PATIENT
  Sex: Male

DRUGS (1)
  1. OTRIVIN [Suspect]
     Indication: NASAL CONGESTION
     Dosage: UNK, UNK
     Route: 065
     Dates: start: 201301, end: 201302

REACTIONS (2)
  - Drug dependence [Recovered/Resolved]
  - Dyspnoea [Recovered/Resolved]
